FAERS Safety Report 6921609-7 (Version None)
Quarter: 2010Q3

REPORT INFORMATION
  Report Type: 
  Country: None (occurrence: None)
  Receive Date: 20100812
  Receipt Date: 20100805
  Transmission Date: 20110219
  Serious: Yes (Hospitalization, Other)
  Sender: FDA-Public Use
  Company Number: US-MERCK-1001USA01370

PATIENT
  Age: 55 Year
  Sex: Female
  Weight: 82 kg

DRUGS (5)
  1. FOSAMAX [Suspect]
     Indication: FOOT FRACTURE
     Route: 048
     Dates: start: 19981230, end: 20061212
  2. FOSAMAX [Suspect]
     Route: 048
     Dates: start: 20061212, end: 20080601
  3. FOSAMAX [Suspect]
     Route: 048
     Dates: start: 20030201
  4. FOSAMAX PLUS D [Suspect]
     Route: 048
  5. CALCIUM (UNSPECIFIED) [Concomitant]
     Route: 065

REACTIONS (53)
  - ACROCHORDON [None]
  - ANAEMIA [None]
  - ANXIETY [None]
  - ARTHRALGIA [None]
  - ARTHROPOD BITE [None]
  - BLOOD PRESSURE INCREASED [None]
  - BONE ABSCESS [None]
  - BONE DENSITY DECREASED [None]
  - BREAST DISORDER [None]
  - BRONCHITIS [None]
  - CATARACT [None]
  - CELLULITIS [None]
  - CHRONIC TONSILLITIS [None]
  - DENTAL CARIES [None]
  - DYSGEUSIA [None]
  - DYSPHAGIA [None]
  - DYSPNOEA [None]
  - FATIGUE [None]
  - GENERAL PHYSICAL HEALTH DETERIORATION [None]
  - GINGIVAL DISORDER [None]
  - HYPERTENSION [None]
  - HYPOKALAEMIA [None]
  - HYPOTENSION [None]
  - IMPAIRED HEALING [None]
  - LARYNGITIS [None]
  - LOOSE TOOTH [None]
  - LYMPHADENOPATHY [None]
  - MALAISE [None]
  - MAMMOGRAM ABNORMAL [None]
  - OEDEMA PERIPHERAL [None]
  - ORAL DISORDER [None]
  - ORAL HERPES [None]
  - ORAL INFECTION [None]
  - ORAL TORUS [None]
  - OSTEONECROSIS OF JAW [None]
  - OTITIS MEDIA [None]
  - PERITONSILLAR ABSCESS [None]
  - PHARYNGEAL ERYTHEMA [None]
  - PHARYNGEAL OEDEMA [None]
  - PHARYNGITIS [None]
  - PLANTAR FASCIITIS [None]
  - POOR PERSONAL HYGIENE [None]
  - PSYCHOMOTOR HYPERACTIVITY [None]
  - PYREXIA [None]
  - SINUSITIS [None]
  - SKIN DISORDER [None]
  - STOMATITIS [None]
  - SWELLING [None]
  - TENDONITIS [None]
  - TONSILLAR HYPERTROPHY [None]
  - TOOTH DISORDER [None]
  - TOOTH FRACTURE [None]
  - WEIGHT INCREASED [None]
